FAERS Safety Report 8285760-4 (Version None)
Quarter: 2012Q2

REPORT INFORMATION
  Report Type: 
  Country: None (occurrence: None)
  Receive Date: 20120413
  Receipt Date: 20120404
  Transmission Date: 20120825
  Serious: Yes (Other)
  Sender: FDA-Public Use
  Company Number: US-ELI_LILLY_AND_COMPANY-US201010003839

PATIENT
  Sex: Female

DRUGS (9)
  1. FORTEO [Suspect]
     Dosage: 20 UG, DAILY (1/D)
  2. FORTEO [Suspect]
     Dosage: 20 UG, QD
  3. FORTEO [Suspect]
     Dosage: 20 UG, DAILY (1/D)
  4. ADVAIR DISKUS 100/50 [Concomitant]
  5. FORTEO [Suspect]
     Indication: OSTEOPOROSIS
     Dosage: 20 UG, DAILY (1/D)
     Dates: start: 20100505
  6. FORTEO [Suspect]
     Dosage: 20 UG, QD
  7. OXYGEN [Concomitant]
  8. FORTEO [Suspect]
     Dosage: 20 UG, QD
  9. FORTEO [Suspect]
     Dosage: 20 UG, QD

REACTIONS (13)
  - MALAISE [None]
  - CARDIAC VALVE DISEASE [None]
  - CHRONIC OBSTRUCTIVE PULMONARY DISEASE [None]
  - SINUSITIS [None]
  - PAIN IN EXTREMITY [None]
  - DENTAL OPERATION [None]
  - ARTHRALGIA [None]
  - PULMONARY HYPERTENSION [None]
  - HERPES ZOSTER [None]
  - BONE PAIN [None]
  - DYSSTASIA [None]
  - INJECTION SITE HAEMATOMA [None]
  - DYSPNOEA [None]
